FAERS Safety Report 11797567 (Version 3)
Quarter: 2015Q4

REPORT INFORMATION
  Report Type: Spontaneous
  Country: FR (occurrence: FR)
  Receive Date: 20151203
  Receipt Date: 20151217
  Transmission Date: 20160305
  Serious: Yes (Hospitalization)
  Sender: FDA-Public Use
  Company Number: FR-TEVA-613659ISR

PATIENT
  Age: 71 Year
  Sex: Female
  Weight: 57 kg

DRUGS (3)
  1. OXALIPLATINE TEVA 200 MG /40 ML [Suspect]
     Active Substance: OXALIPLATIN
     Route: 042
     Dates: start: 20151110, end: 20151110
  2. LEVOFOLINATE CALCIQUE [Suspect]
     Active Substance: LEVOLEUCOVORIN CALCIUM
     Route: 042
     Dates: start: 20151110, end: 20151110
  3. FLUOROURACILE PFIZER [Suspect]
     Active Substance: FLUOROURACIL
     Dosage: 850 MILLIGRAM DAILY; INFUSION PER 48 HOURS
     Route: 042
     Dates: start: 20151110, end: 20151113

REACTIONS (5)
  - Hyperhidrosis [Recovered/Resolved]
  - Drug hypersensitivity [Recovered/Resolved]
  - Hypotension [Recovered/Resolved]
  - Dyspnoea [Recovered/Resolved]
  - Rales [Recovered/Resolved]

NARRATIVE: CASE EVENT DATE: 20151110
